APPROVED DRUG PRODUCT: RYBELSUS
Active Ingredient: SEMAGLUTIDE
Strength: 4MG
Dosage Form/Route: TABLET;ORAL
Application: N213051 | Product #005
Applicant: NOVO NORDISK INC
Approved: Dec 9, 2024 | RLD: Yes | RS: Yes | Type: RX

PATENTS:
Patent 12514822 | Expires: May 2, 2034
Patent 12239739 | Expires: May 2, 2034
Patent 8536122 | Expires: Mar 20, 2026
Patent 8129343 | Expires: Dec 5, 2031
Patent 11833248 | Expires: Feb 1, 2039
Patent 12396953 | Expires: Feb 1, 2039
Patent 10278923 | Expires: May 2, 2034
Patent 11382957 | Expires: Dec 16, 2031

EXCLUSIVITY:
Code: I-976 | Date: Oct 17, 2028